FAERS Safety Report 8140666-6 (Version None)
Quarter: 2012Q1

REPORT INFORMATION
  Report Type: 
  Country: None (occurrence: None)
  Receive Date: 20120216
  Receipt Date: 20120209
  Transmission Date: 20120608
  Serious: Yes (Other)
  Sender: FDA-Public Use
  Company Number: BE-UCBSA-051098

PATIENT
  Age: 30 Year
  Sex: Female

DRUGS (2)
  1. CERTOLIZUMAB PEGOL [Suspect]
     Indication: RHEUMATOID ARTHRITIS
     Dosage: TOTAL NUMBER OF DOSES RECEIVED : 4
     Route: 058
     Dates: start: 20111201
  2. METHOTREXATE [Concomitant]
     Indication: RHEUMATOID ARTHRITIS
     Dosage: UNKNOWN DOSE

REACTIONS (1)
  - HAIR DISORDER [None]
